FAERS Safety Report 6133835-8 (Version None)
Quarter: 2009Q1

REPORT INFORMATION
  Report Type: 
  Country: None (occurrence: None)
  Receive Date: 20090326
  Receipt Date: 20090317
  Transmission Date: 20090719
  Serious: Yes (Hospitalization)
  Sender: FDA-Public Use
  Company Number: GB-ABBOTT-08P-167-0476996-00

PATIENT
  Sex: Female
  Weight: 100 kg

DRUGS (2)
  1. RITONAVIR SOFT GELATIN CAPSULES [Suspect]
     Indication: HIV INFECTION
     Route: 048
     Dates: start: 20080515
  2. TMC 114 [Concomitant]
     Indication: HIV INFECTION
     Route: 048
     Dates: start: 20080515

REACTIONS (1)
  - VULVAL ULCERATION [None]
